FAERS Safety Report 14480927 (Version 1)
Quarter: 2018Q1

REPORT INFORMATION
  Report Type: Spontaneous
  Country: US (occurrence: US)
  Receive Date: 20180201
  Receipt Date: 20180201
  Transmission Date: 20180509
  Serious: Yes (Other)
  Sender: FDA-Public Use
  Company Number: None

PATIENT
  Age: 94 Year
  Sex: Female
  Weight: 60.75 kg

DRUGS (14)
  1. IRBESARTAN,GENERIC AVAPRO [Suspect]
     Active Substance: IRBESARTAN
     Indication: HYPERTENSION
     Dosage: ?          QUANTITY:1 CAPSULE(S);?
     Route: 048
  2. MAG 64 [Concomitant]
  3. FISH OIL [Concomitant]
     Active Substance: FISH OIL
  4. NIACIN. [Concomitant]
     Active Substance: NIACIN
  5. CLOPIDOGREL [Suspect]
     Active Substance: CLOPIDOGREL BISULFATE
     Indication: HYPERTENSION
     Dosage: ?          QUANTITY:1 TABLET(S);?
     Route: 048
     Dates: start: 20171220, end: 20171221
  6. PLAVIX [Concomitant]
     Active Substance: CLOPIDOGREL BISULFATE
  7. PEPCID [Concomitant]
     Active Substance: FAMOTIDINE
  8. CARDURA [Concomitant]
     Active Substance: DOXAZOSIN MESYLATE
  9. DIGOXIN. [Concomitant]
     Active Substance: DIGOXIN
  10. GLUCOSAMINE [Concomitant]
     Active Substance: GLUCOSAMINE
  11. HCTZ [Concomitant]
     Active Substance: HYDROCHLOROTHIAZIDE
  12. CLONIDINE. [Concomitant]
     Active Substance: CLONIDINE
  13. I-CAPS [Concomitant]
  14. POTASSIUM [Concomitant]
     Active Substance: POTASSIUM

REACTIONS (4)
  - Product formulation issue [None]
  - Dizziness [None]
  - Headache [None]
  - Eye disorder [None]
